FAERS Safety Report 5297978-3 (Version None)
Quarter: 2007Q2

REPORT INFORMATION
  Report Type: 
  Country: None (occurrence: None)
  Receive Date: 20070416
  Receipt Date: 20070403
  Transmission Date: 20071010
  Serious: Yes (Other)
  Sender: FDA-Public Use
  Company Number: PHEH2007US04070

PATIENT
  Age: 64 Year
  Sex: Female

DRUGS (9)
  1. XANAX [Concomitant]
     Dosage: 1 MG, BID
     Route: 048
  2. POTASSIUM ACETATE [Concomitant]
     Dosage: UNK, UNK
  3. FUROSEMIDE [Concomitant]
     Dosage: 20 MG, UNK
     Route: 048
  4. NEXIUM [Concomitant]
     Dates: start: 20070329
  5. FEXOFENADINE HYDROCHLORIDE [Concomitant]
     Indication: TREMOR
  6. LISINOPRIL W/HYDROCHLOROTHIAZIDE [Concomitant]
     Dosage: 20-12.5 MG, BID
     Route: 048
  7. LIPITOR /NET/ [Concomitant]
     Dosage: 80 MG, QD
     Route: 048
  8. ZETIA [Concomitant]
     Dosage: 10 MG, QHS
     Route: 048
  9. ZELNORM [Suspect]
     Indication: CONSTIPATION
     Dosage: 6 MG, BID
     Route: 048
     Dates: start: 20070329, end: 20070329

REACTIONS (3)
  - ABDOMINAL PAIN UPPER [None]
  - CONSTIPATION [None]
  - HAEMATOCHEZIA [None]
